FAERS Safety Report 8391069-0 (Version None)
Quarter: 2012Q2

REPORT INFORMATION
  Report Type: 
  Country: None (occurrence: None)
  Receive Date: 20120529
  Receipt Date: 20120516
  Transmission Date: 20120825
  Serious: Yes (Other)
  Sender: FDA-Public Use
  Company Number: US-JNJFOC-20120517366

PATIENT

DRUGS (6)
  1. RADIATION THERAPY NOS [Concomitant]
     Indication: BREAST CANCER
     Route: 065
  2. BEVACIZUMAB [Suspect]
     Indication: BREAST CANCER
     Dosage: EVERY 14 DAYS FOR 18 CYCLES (CYCLE 9-30 IN ARM B)
     Route: 042
  3. DOXORUBICIN HCL [Suspect]
     Indication: BREAST CANCER
     Dosage: EVERY 14 DAYS FOR 4 CYCLES IN ARM A AND B
     Route: 042
  4. CYCLOPHOSPHAMIDE [Suspect]
     Indication: BREAST CANCER
     Dosage: EVERY 14 DAYS FOR 4 CYCLES IN ARM A AND B
     Route: 065
  5. HORMONAL TREATMENT NOS [Concomitant]
     Indication: BREAST CANCER
     Route: 065
  6. PACLITAXEL [Suspect]
     Indication: BREAST CANCER
     Dosage: EVERY 14 DAYS FOR 4 CYCLES IN ARM A AND B, CYCLE 5-8
     Route: 065

REACTIONS (2)
  - EMBOLISM [None]
  - THROMBOSIS [None]
